FAERS Safety Report 22061007 (Version 2)
Quarter: 2023Q2

REPORT INFORMATION
  Report Type: Report from Study
  Country: US (occurrence: US)
  Receive Date: 20230303
  Receipt Date: 20230503
  Transmission Date: 20230722
  Serious: Yes (Hospitalization)
  Sender: FDA-Public Use
  Company Number: US-JAZZ PHARMACEUTICALS-2022-US-032848

PATIENT
  Sex: Female

DRUGS (19)
  1. XYWAV [Suspect]
     Active Substance: CALCIUM OXYBATE\MAGNESIUM OXYBATE\POTASSIUM OXYBATE\SODIUM OXYBATE
     Indication: Narcolepsy
     Dosage: 4.5G AT BEDTIME AND 3.75G 2.5-4 HOURS LATER
  2. XYWAV [Suspect]
     Active Substance: CALCIUM OXYBATE\MAGNESIUM OXYBATE\POTASSIUM OXYBATE\SODIUM OXYBATE
     Dosage: 4.5G AT BEDTIME AND 3.75G 2.5-4 HOURS LATER
  3. LEVOTHYROXINE [Concomitant]
     Active Substance: LEVOTHYROXINE
     Dosage: UNK
     Dates: start: 20150416
  4. MONTELUKAST SODIUM [Concomitant]
     Active Substance: MONTELUKAST SODIUM
     Dosage: UNK
     Dates: start: 20150416
  5. VITAMINS [Concomitant]
     Active Substance: VITAMINS
     Dosage: UNK UNK, QD
     Dates: start: 20150416
  6. ASPIRIN [Concomitant]
     Active Substance: ASPIRIN
     Dosage: UNK UNK, QD
     Dates: start: 20150416
  7. FERROUS SULFATE [Concomitant]
     Active Substance: FERROUS SULFATE
     Dosage: UNK UNK, QD
     Dates: start: 20150416
  8. VITAMIN D3 [Concomitant]
     Active Substance: CHOLECALCIFEROL
     Dosage: 2,000 UNIT SOFTGEL
     Dates: start: 20170101
  9. ALIGN [Concomitant]
     Active Substance: BIFIDOBACTERIUM LONGUM SUBSP. INFANTIS
     Dosage: UNK UNK, QD
     Dates: start: 20151101
  10. CALCIUM CITRATE [Concomitant]
     Active Substance: CALCIUM CITRATE
     Dosage: UNK UNK, QD
     Dates: start: 20151101
  11. DEPLIN [LEVOMEFOLIC ACID] [Concomitant]
     Dosage: UNK UNK, QD
     Dates: start: 20151201
  12. .ALPHA.-TOCOPHEROL ACETATE [Concomitant]
     Active Substance: .ALPHA.-TOCOPHEROL ACETATE
     Dosage: 400 UNIT
     Dates: start: 20151101
  13. METAXALONE [Concomitant]
     Active Substance: METAXALONE
     Dosage: UNK
     Dates: start: 20220704
  14. METHYLPREDNISOLONE [Concomitant]
     Active Substance: METHYLPREDNISOLONE
     Dosage: DOSEPAK
     Dates: start: 20220704
  15. LIDOCAINE [Concomitant]
     Active Substance: LIDOCAINE
     Dosage: 0000
     Dates: start: 20220704
  16. MELOXICAM [Concomitant]
     Active Substance: MELOXICAM
     Dosage: 0000
     Dates: start: 20220704
  17. ALPRAZOLAM [Concomitant]
     Active Substance: ALPRAZOLAM
     Dosage: 0000
     Dates: start: 20200706
  18. PREDNISONE [Concomitant]
     Active Substance: PREDNISONE
     Dosage: 0000
     Dates: start: 20220804
  19. CARVEDILOL [Concomitant]
     Active Substance: CARVEDILOL
     Dosage: 0000
     Dates: start: 20220919

REACTIONS (4)
  - Wound infection [Unknown]
  - Unevaluable event [Unknown]
  - Incoherent [Unknown]
  - Inappropriate schedule of product administration [Unknown]
